FAERS Safety Report 9340587 (Version 1)
Quarter: 2013Q2

REPORT INFORMATION
  Report Type: Spontaneous
  Country: CH (occurrence: CH)
  Receive Date: 20130610
  Receipt Date: 20130610
  Transmission Date: 20140414
  Serious: Yes (Other)
  Sender: FDA-Public Use
  Company Number: CHPA2013CH009555

PATIENT
  Age: 54 Year
  Sex: Female
  Weight: 57 kg

DRUGS (4)
  1. TAVEGYL [Suspect]
     Dosage: 1 DF, UNK
     Route: 042
     Dates: start: 20130103
  2. ONDANSETRON [Suspect]
     Dosage: 1 DF, UNK
     Route: 042
     Dates: start: 20130103, end: 20130124
  3. CARBOPLATIN TEVA [Suspect]
     Dosage: 1 DF, UNK
     Route: 042
     Dates: start: 20121122, end: 20130124
  4. MEPHAMESONE [Suspect]
     Dosage: 1 DF, UNK
     Route: 042
     Dates: start: 20130103, end: 20130124

REACTIONS (4)
  - Paraesthesia [Recovered/Resolved]
  - Tinnitus [Recovered/Resolved]
  - Rash erythematous [Recovered/Resolved]
  - Pruritus [None]
